FAERS Safety Report 12079517 (Version 3)
Quarter: 2022Q3

REPORT INFORMATION
  Report Type: Spontaneous
  Country: US (occurrence: US)
  Receive Date: 20160216
  Receipt Date: 20220928
  Transmission Date: 20221027
  Serious: Yes (Death, Other)
  Sender: FDA-Public Use
  Company Number: US-PFIZER INC-2016085200

PATIENT
  Age: 79 Year
  Sex: Female

DRUGS (2)
  1. XELJANZ [Suspect]
     Active Substance: TOFACITINIB CITRATE
     Indication: Rheumatoid arthritis
     Dosage: 5 MG, 2X/DAY
     Route: 048
     Dates: start: 2014, end: 20160207
  2. XELJANZ [Suspect]
     Active Substance: TOFACITINIB CITRATE
     Dosage: 5 MG, 2X/DAY
     Route: 048
     Dates: start: 20160209

REACTIONS (4)
  - Death [Fatal]
  - Back pain [Unknown]
  - Skin cancer [Unknown]
  - Tinea infection [Unknown]

NARRATIVE: CASE EVENT DATE: 20160207
